FAERS Safety Report 8848769 (Version 1)
Quarter: 2012Q4

REPORT INFORMATION
  Report Type: Spontaneous
  Country: US (occurrence: None)
  Receive Date: 20121017
  Receipt Date: 20121017
  Transmission Date: 20130627
  Serious: Yes (Disabling)
  Sender: FDA-Public Use
  Company Number: None

PATIENT
  Age: 48 Year
  Sex: Female
  Weight: 72.58 kg

DRUGS (1)
  1. TECHNETIUM TC-99M SULFUR COLLOID [Suspect]
     Indication: SENSORY PERIPHERAL NEUROPATHY
     Dates: start: 20120922, end: 20120922

REACTIONS (1)
  - Peripheral sensory neuropathy [None]
